FAERS Safety Report 5331230-2 (Version None)
Quarter: 2007Q2

REPORT INFORMATION
  Report Type: 
  Country: None (occurrence: None)
  Receive Date: 20070522
  Receipt Date: 20070511
  Transmission Date: 20071010
  Serious: Yes (Hospitalization)
  Sender: FDA-Public Use
  Company Number: US-MERCK-0702USA03094

PATIENT
  Age: 62 Year
  Sex: Female

DRUGS (10)
  1. ZOCOR [Suspect]
     Indication: BLOOD CHOLESTEROL INCREASED
     Route: 048
     Dates: start: 20050101, end: 20070101
  2. LISINOPRIL [Concomitant]
     Route: 048
  3. SYNTHROID [Concomitant]
     Route: 065
  4. NEXIUM [Concomitant]
     Route: 065
  5. NITROFURANT [Concomitant]
     Route: 065
  6. [THERAPY UNSPECIFIED] [Concomitant]
     Route: 065
  7. DETROL [Concomitant]
     Route: 065
  8. PLAVIX [Concomitant]
     Route: 065
  9. NITROFURANT [Concomitant]
     Route: 065
  10. ZOCOR [Concomitant]
     Route: 065

REACTIONS (4)
  - AMNESIA [None]
  - CHEST PAIN [None]
  - MUSCULOSKELETAL DISCOMFORT [None]
  - MUSCULOSKELETAL PAIN [None]
